FAERS Safety Report 13376236 (Version 8)
Quarter: 2017Q3

REPORT INFORMATION
  Report Type: Report from Study
  Country: US (occurrence: US)
  Receive Date: 20170328
  Receipt Date: 20170705
  Transmission Date: 20171127
  Serious: Yes (Hospitalization, Other)
  Sender: FDA-Public Use
  Company Number: US-BAYER-2017-022955

PATIENT
  Age: 73 Year
  Sex: Female
  Weight: 71.66 kg

DRUGS (16)
  1. ADEMPAS [Suspect]
     Active Substance: RIOCIGUAT
     Indication: PULMONARY ARTERIAL HYPERTENSION
     Dosage: 0.5 MG, TID
     Route: 048
     Dates: start: 20170130
  2. ADEMPAS [Suspect]
     Active Substance: RIOCIGUAT
     Indication: PULMONARY ARTERIAL HYPERTENSION
     Dosage: 1.5 MG, TID
     Route: 048
  3. COUMADIN [Concomitant]
     Active Substance: WARFARIN SODIUM
     Dosage: UNK
  4. UPTRAVI [Concomitant]
     Active Substance: SELEXIPAG
     Dosage: 400 ?G, BID
  5. ADEMPAS [Suspect]
     Active Substance: RIOCIGUAT
     Indication: PULMONARY ARTERIAL HYPERTENSION
     Dosage: 2 MG, TID
     Route: 048
  6. UPTRAVI [Concomitant]
     Active Substance: SELEXIPAG
     Dosage: 200 ?G, BID
  7. ADEMPAS [Suspect]
     Active Substance: RIOCIGUAT
     Indication: PULMONARY ARTERIAL HYPERTENSION
     Dosage: 1.0 MG, TID
     Route: 048
  8. ADEMPAS [Suspect]
     Active Substance: RIOCIGUAT
     Indication: PULMONARY ARTERIAL HYPERTENSION
     Dosage: 1 MG, TID
     Route: 048
  9. ADEMPAS [Suspect]
     Active Substance: RIOCIGUAT
     Indication: PULMONARY ARTERIAL HYPERTENSION
     Dosage: 2 MG, TID
     Route: 048
  10. WARFARIN [Concomitant]
     Active Substance: WARFARIN
     Dosage: UNK
  11. LASIX [Concomitant]
     Active Substance: FUROSEMIDE
     Dosage: UNK
  12. ADEMPAS [Suspect]
     Active Substance: RIOCIGUAT
     Indication: PULMONARY ARTERIAL HYPERTENSION
     Dosage: 1.5 MG, TID
     Route: 048
  13. ADEMPAS [Suspect]
     Active Substance: RIOCIGUAT
     Indication: PULMONARY ARTERIAL HYPERTENSION
     Dosage: 1.5 MG, TID
     Route: 048
  14. ADEMPAS [Suspect]
     Active Substance: RIOCIGUAT
     Indication: PULMONARY ARTERIAL HYPERTENSION
     Dosage: 2.5 MG, TID
     Route: 048
  15. ADEMPAS [Suspect]
     Active Substance: RIOCIGUAT
     Indication: PULMONARY ARTERIAL HYPERTENSION
     Dosage: 1.5 MG, TID
     Route: 048
  16. OPSUMIT [Concomitant]
     Active Substance: MACITENTAN
     Dosage: UNK

REACTIONS (51)
  - Fluid retention [None]
  - Oropharyngeal pain [Unknown]
  - Dizziness [Unknown]
  - Abdominal discomfort [Unknown]
  - Blood sodium decreased [Not Recovered/Not Resolved]
  - Restlessness [None]
  - Influenza like illness [Unknown]
  - Anxiety [Unknown]
  - Respiratory tract infection [None]
  - Cough [Unknown]
  - Nasal congestion [Unknown]
  - Visual impairment [Unknown]
  - Nasopharyngitis [Unknown]
  - Oedema peripheral [Not Recovered/Not Resolved]
  - Peripheral swelling [Unknown]
  - Chest discomfort [None]
  - Dyspepsia [Unknown]
  - Vision blurred [Unknown]
  - Chest discomfort [Unknown]
  - Myalgia [Unknown]
  - Pain in extremity [Unknown]
  - Throat irritation [Unknown]
  - Insomnia [None]
  - Dyspnoea [Not Recovered/Not Resolved]
  - Fatigue [Not Recovered/Not Resolved]
  - Blood pressure decreased [Unknown]
  - Cardiac failure congestive [None]
  - Pulmonary arterial hypertension [Unknown]
  - Oedema [Unknown]
  - Pain [None]
  - Electrolyte imbalance [Unknown]
  - Headache [Unknown]
  - Respiratory tract congestion [Unknown]
  - Dyspnoea [Unknown]
  - Back pain [Unknown]
  - Weight increased [Unknown]
  - Intra-abdominal fluid collection [Unknown]
  - Fluid retention [Unknown]
  - Blood sodium decreased [Unknown]
  - Depression [Not Recovered/Not Resolved]
  - Myalgia [Recovering/Resolving]
  - Depression [Unknown]
  - Influenza like illness [Recovered/Resolved]
  - Tremor [Unknown]
  - Hyponatraemia [None]
  - Hospitalisation [None]
  - Anxiety [Not Recovered/Not Resolved]
  - Middle insomnia [None]
  - Hypotension [Unknown]
  - Palpitations [Unknown]
  - Fluid retention [Recovering/Resolving]

NARRATIVE: CASE EVENT DATE: 201703
